FAERS Safety Report 11343797 (Version 1)
Quarter: 2015Q3

REPORT INFORMATION
  Report Type: Report from Study
  Country: BR (occurrence: BR)
  Receive Date: 20150806
  Receipt Date: 20150806
  Transmission Date: 20151125
  Serious: Yes (Other)
  Sender: FDA-Public Use
  Company Number: PHHY2015BR092890

PATIENT
  Sex: Female
  Weight: 58 kg

DRUGS (9)
  1. ONBREZ BREEZHALER [Suspect]
     Active Substance: INDACATEROL
     Indication: COUGH
  2. ONBREZ BREEZHALER [Suspect]
     Active Substance: INDACATEROL
     Indication: DYSPNOEA
     Dosage: 300 UG, BID (IN MORNING AND NIGHT)
     Route: 065
  3. MIFLONIDE [Suspect]
     Active Substance: BUDESONIDE
     Indication: COUGH
  4. FLUIR [Suspect]
     Active Substance: FORMOTEROL FUMARATE
     Indication: DYSPNOEA
     Dosage: 12 MG, BID (PATIENT USING IT ONCE A DAY)
     Route: 065
  5. ONBREZ BREEZHALER [Suspect]
     Active Substance: INDACATEROL
     Indication: CATARRH
  6. MIFLONIDE [Suspect]
     Active Substance: BUDESONIDE
     Indication: DYSPNOEA
     Dosage: 400 MG, BID (BUT PATIENT USING ONCE AT NIGHT)
     Route: 065
  7. MIFLONIDE [Suspect]
     Active Substance: BUDESONIDE
     Indication: FATIGUE
  8. MIFLONIDE [Suspect]
     Active Substance: BUDESONIDE
     Indication: CATARRH
  9. ONBREZ BREEZHALER [Suspect]
     Active Substance: INDACATEROL
     Indication: FATIGUE

REACTIONS (5)
  - Dyspnoea [Recovering/Resolving]
  - Pulmonary mass [Recovering/Resolving]
  - Malaise [Recovering/Resolving]
  - Fatigue [Recovering/Resolving]
  - Product use issue [Unknown]
